FAERS Safety Report 7280640-5 (Version None)
Quarter: 2011Q1

REPORT INFORMATION
  Report Type: 
  Country: None (occurrence: None)
  Receive Date: 20110208
  Receipt Date: 20110204
  Transmission Date: 20110831
  Serious: Yes (Hospitalization)
  Sender: FDA-Public Use
  Company Number: A0779033A

PATIENT
  Age: 59 Year
  Sex: Female

DRUGS (10)
  1. CLONIDINE [Concomitant]
  2. TRENTAL [Concomitant]
  3. AVANDIA [Suspect]
     Indication: DIABETES MELLITUS
     Dosage: 4MG TWICE PER DAY
     Route: 048
     Dates: start: 20060415, end: 20070521
  4. AMARYL [Concomitant]
  5. GLIMEPIRIDE [Concomitant]
  6. LISINOPRIL [Concomitant]
  7. METFORMIN [Concomitant]
  8. ZOCOR [Concomitant]
  9. PROPOXYPHENE HCL AND ACETAMINOPHEN [Concomitant]
  10. VERAPAMIL [Concomitant]

REACTIONS (2)
  - CARDIAC FAILURE CONGESTIVE [None]
  - CEREBROVASCULAR ACCIDENT [None]
